FAERS Safety Report 9639704 (Version 1)
Quarter: 2013Q4

REPORT INFORMATION
  Report Type: Spontaneous
  Country: FR (occurrence: FR)
  Receive Date: 20131023
  Receipt Date: 20131023
  Transmission Date: 20140711
  Serious: Yes (Hospitalization)
  Sender: FDA-Public Use
  Company Number: FR-009507513-1310FRA006478

PATIENT
  Age: 50 Year
  Sex: Female

DRUGS (1)
  1. TEMODAL [Suspect]
     Indication: PRODUCT USED FOR UNKNOWN INDICATION
     Dosage: 240 MG, QD
     Route: 048
     Dates: start: 20130620, end: 20130624

REACTIONS (2)
  - Ophthalmic herpes zoster [Recovered/Resolved]
  - Thrombocytopenia [Recovered/Resolved]
